FAERS Safety Report 24206589 (Version 1)
Quarter: 2024Q3

REPORT INFORMATION
  Report Type: Report from Study
  Country: IT (occurrence: IT)
  Receive Date: 20240813
  Receipt Date: 20240813
  Transmission Date: 20241017
  Serious: Yes (Other)
  Sender: JAZZ
  Company Number: IT-JAZZ PHARMACEUTICALS-2024-IT-010278

PATIENT
  Sex: Female

DRUGS (12)
  1. VYXEOS [Suspect]
     Active Substance: CYTARABINE\DAUNORUBICIN
     Indication: Acute myeloid leukaemia
     Dosage: 44 MILLIGRAM/SQ. METER, Q3W
     Route: 042
     Dates: start: 20240621, end: 20240625
  2. METHIMAZOLE [Concomitant]
     Active Substance: METHIMAZOLE
     Indication: Hyperthyroidism
     Dosage: UNK
     Dates: start: 20240612
  3. MYCOSTATIN [Concomitant]
     Active Substance: NYSTATIN
     Indication: Prophylaxis
     Dosage: 10000000 IU/100 ML TID
     Dates: start: 20240618
  4. CHLORHEXIDINE [Concomitant]
     Active Substance: CHLORHEXIDINE
     Indication: Candida infection
     Dosage: 0. 20 PERCENT, TID
  5. POSACONAZOLE [Concomitant]
     Active Substance: POSACONAZOLE
     Indication: Prophylaxis
     Dosage: UNK, QD
  6. CANRENOATE POTASSIUM [Concomitant]
     Active Substance: CANRENOATE POTASSIUM
     Indication: Oedema
     Dosage: UNK, QD
     Route: 042
     Dates: start: 20240619
  7. PANTOPRAZOLE [Concomitant]
     Active Substance: PANTOPRAZOLE
     Indication: Prophylaxis
     Dosage: UNK, QD
     Route: 042
     Dates: start: 20240623
  8. CASPOFUNGIN [Concomitant]
     Active Substance: CASPOFUNGIN
     Indication: Antifungal prophylaxis
     Dosage: UNK, QD
     Route: 042
     Dates: start: 20240625
  9. ALBUMIN HUMAN [Concomitant]
     Active Substance: ALBUMIN HUMAN
     Indication: Product used for unknown indication
     Dosage: 20 PERCENT
     Route: 042
     Dates: start: 20240627
  10. FUROSEMIDE [Concomitant]
     Active Substance: FUROSEMIDE
     Indication: Product used for unknown indication
     Dosage: UNK, QD
     Route: 042
     Dates: start: 20240627, end: 20240627
  11. SULFAMETHOXAZOLE\TRIMETHOPRIM [Concomitant]
     Active Substance: SULFAMETHOXAZOLE\TRIMETHOPRIM
     Indication: Prophylaxis
     Dosage: 80 MG + 400 MG TID PER WEEK
  12. MEROPENEM [Concomitant]
     Active Substance: MEROPENEM
     Indication: Prophylaxis
     Dosage: UNK UNK, QD
     Route: 042

REACTIONS (1)
  - Bradycardia [Not Recovered/Not Resolved]

NARRATIVE: CASE EVENT DATE: 20240628
